FAERS Safety Report 5564611-2 (Version None)
Quarter: 2007Q4

REPORT INFORMATION
  Report Type: 
  Country: None (occurrence: None)
  Receive Date: 20071212
  Receipt Date: 20071203
  Transmission Date: 20080405
  Serious: Yes (Life-Threatening, Other)
  Sender: FDA-Public Use
  Company Number: 2007P1000708

PATIENT
  Age: 52 Year
  Sex: Female

DRUGS (2)
  1. BUSULFAN (BUSULFAN) [Suspect]
     Indication: STEM CELL TRANSPLANT
     Dosage: 12 ML; QD; IV;  24 ML; QD; IV
     Route: 042
     Dates: start: 20070604, end: 20070605
  2. BUSULFAN (BUSULFAN) [Suspect]
     Indication: STEM CELL TRANSPLANT
     Dosage: 12 ML; QD; IV;  24 ML; QD; IV
     Route: 042
     Dates: start: 20070607, end: 20070608

REACTIONS (9)
  - CARDIAC FAILURE [None]
  - ENTERITIS [None]
  - GENERALISED OEDEMA [None]
  - HEPATIC CONGESTION [None]
  - NO THERAPEUTIC RESPONSE [None]
  - PERITONITIS [None]
  - PSEUDOMEMBRANOUS COLITIS [None]
  - STAPHYLOCOCCAL SEPSIS [None]
  - WEIGHT INCREASED [None]
